FAERS Safety Report 10330865 (Version 2)
Quarter: 2014Q3

REPORT INFORMATION
  Report Type: Spontaneous
  Country: US (occurrence: None)
  Receive Date: 20140718
  Receipt Date: 20140801
  Transmission Date: 20150326
  Serious: Yes (Hospitalization)
  Sender: FDA-Public Use
  Company Number: UNT-2014-003855

PATIENT
  Age: 73 Year
  Sex: Male
  Weight: 82.9 kg

DRUGS (1)
  1. TYVASO [Suspect]
     Active Substance: TREPROSTINIL
     Indication: PULMONARY ARTERIAL HYPERTENSION
     Route: 055
     Dates: start: 20140707, end: 20140712

REACTIONS (5)
  - Head injury [None]
  - Electrocardiogram abnormal [None]
  - Fall [None]
  - Loss of consciousness [None]
  - Skin abrasion [None]
